FAERS Safety Report 6259020-7 (Version None)
Quarter: 2009Q3

REPORT INFORMATION
  Report Type: 
  Country: None (occurrence: None)
  Receive Date: 20090707
  Receipt Date: 20090629
  Transmission Date: 20100115
  Serious: Yes (Other)
  Sender: FDA-Public Use
  Company Number: PHEH2009US06906

PATIENT
  Sex: Male

DRUGS (1)
  1. EXELON [Suspect]
     Dosage: 9.5 MG, UNK
     Dates: start: 20090401

REACTIONS (3)
  - DIARRHOEA [None]
  - SURGERY [None]
  - WEIGHT DECREASED [None]
